FAERS Safety Report 8473703-X (Version None)
Quarter: 2012Q2

REPORT INFORMATION
  Report Type: 
  Country: None (occurrence: None)
  Receive Date: 20120628
  Receipt Date: 20111006
  Transmission Date: 20120825
  Serious: Yes (Death)
  Sender: FDA-Public Use
  Company Number: US-MYLANLABS-2011S1019294

PATIENT
  Age: 59 Year
  Sex: Male

DRUGS (4)
  1. CLOZAPINE [Suspect]
     Route: 048
     Dates: start: 20071127, end: 20110101
  2. TRIAMTERENE AND HYDROCHLOROTHIAZIDE [Concomitant]
     Dosage: 37.5/25MG
     Route: 048
  3. SIMVASTATIN [Concomitant]
     Route: 048
  4. DECLOMYCIN /00032801/ [Concomitant]
     Route: 048

REACTIONS (1)
  - DEATH [None]
